FAERS Safety Report 4852978-X (Version None)
Quarter: 2005Q4

REPORT INFORMATION
  Report Type: 
  Country: None (occurrence: None)
  Receive Date: 20051212
  Receipt Date: 20051121
  Transmission Date: 20060501
  Serious: Yes (Other)
  Sender: FDA-Public Use
  Company Number: USA0509107959

PATIENT
  Age: 71 Year
  Sex: Male

DRUGS (22)
  1. FORTEO [Suspect]
     Indication: OSTEOPOROSIS
     Dosage: 20 UG, DAILY (1/D)
     Dates: start: 20030101, end: 20040101
  2. FORTEO [Suspect]
     Indication: OSTEOPOROSIS
     Dosage: 20 UG, DAILY (1/D)
     Dates: start: 20040701, end: 20051003
  3. FORTEO PEN (FORTEO PEN) PEN, DISPOSABLE [Concomitant]
  4. ADAVIR DISKUS [Concomitant]
  5. ALUPENT [Concomitant]
  6. PROPECIA [Concomitant]
  7. SULINDAC [Concomitant]
  8. PRILOSEC [Concomitant]
  9. CLARITIN [Concomitant]
  10. SINGULAIR [Concomitant]
  11. WELLBUTRIN SR [Concomitant]
  12. MULTIVITAMIN [Concomitant]
  13. MINERALS NOS [Concomitant]
  14. FOLIC ACID [Concomitant]
  15. CALCIUM (CALCIUM) [Concomitant]
  16. VITAMIN D [Concomitant]
  17. LOMOTIL [Concomitant]
  18. METROGEL [Concomitant]
  19. RETIN A (TRETIINOIN) [Concomitant]
  20. CLINORIL [Concomitant]
  21. SOMA [Concomitant]
  22. DEPO-TESTOSTERONE [Concomitant]

REACTIONS (6)
  - BLOOD IMMUNOGLOBULIN E INCREASED [None]
  - EOSINOPHILIA [None]
  - HAEMOPTYSIS [None]
  - IMMUNE SYSTEM DISORDER [None]
  - NECROSIS [None]
  - PULMONARY GRANULOMA [None]
